FAERS Safety Report 5827077-0 (Version None)
Quarter: 2008Q3

REPORT INFORMATION
  Report Type: 
  Country: None (occurrence: None)
  Receive Date: 20080724
  Receipt Date: 20080707
  Transmission Date: 20090109
  Serious: Yes (Hospitalization)
  Sender: FDA-Public Use
  Company Number: 2008-02534

PATIENT
  Age: 43 Year
  Sex: Female

DRUGS (4)
  1. VELCADE [Suspect]
     Indication: MULTIPLE MYELOMA
     Dosage: 1.8 MG
     Dates: end: 20080612
  2. OXYCONTIN [Concomitant]
  3. OXYCODONE HCL [Concomitant]
  4. ZOPICLONE           (ZOPICLONE) [Concomitant]

REACTIONS (3)
  - HEADACHE [None]
  - NEUROTOXICITY [None]
  - RESTLESSNESS [None]
